FAERS Safety Report 8411325-7 (Version None)
Quarter: 2012Q2

REPORT INFORMATION
  Report Type: 
  Country: None (occurrence: None)
  Receive Date: 20120605
  Receipt Date: 20120507
  Transmission Date: 20120825
  Serious: No
  Sender: FDA-Public Use
  Company Number: US-AMGEN-USASP2012028688

PATIENT
  Age: 58 Year
  Sex: Female

DRUGS (4)
  1. TREXALL [Concomitant]
     Dosage: 1 MG, UNK
     Dates: start: 20110101
  2. ENBREL [Suspect]
     Indication: OSTEOARTHRITIS
  3. ENBREL [Suspect]
     Indication: RHEUMATOID ARTHRITIS
     Dosage: 50 MG, QWK
     Dates: start: 20120506
  4. ENBREL [Suspect]
     Indication: FIBROMYALGIA

REACTIONS (2)
  - INJECTION SITE INDURATION [None]
  - INJECTION SITE HAEMORRHAGE [None]
